FAERS Safety Report 5874985-0 (Version None)
Quarter: 2008Q3

REPORT INFORMATION
  Report Type: 
  Country: None (occurrence: None)
  Receive Date: 20080908
  Receipt Date: 20080908
  Transmission Date: 20090109
  Serious: Yes (Hospitalization, Other)
  Sender: FDA-Public Use
  Company Number: None

PATIENT
  Weight: 63.5036 kg

DRUGS (1)
  1. DEPO-PROVERA [Suspect]
     Dosage: 3-MONTH
     Dates: start: 20070701, end: 20080701

REACTIONS (7)
  - ACTIVITIES OF DAILY LIVING IMPAIRED [None]
  - CONVULSION [None]
  - LOSS OF CONSCIOUSNESS [None]
  - QUALITY OF LIFE DECREASED [None]
  - STRESS [None]
  - SYNCOPE VASOVAGAL [None]
  - VICTIM OF SEXUAL ABUSE [None]
